FAERS Safety Report 6655816-8 (Version None)
Quarter: 2010Q1

REPORT INFORMATION
  Report Type: 
  Country: None (occurrence: None)
  Receive Date: 20100329
  Receipt Date: 20100323
  Transmission Date: 20100710
  Serious: Yes (Life-Threatening)
  Sender: FDA-Public Use
  Company Number: JP-ROCHE-693247

PATIENT
  Sex: Male

DRUGS (13)
  1. TOCILIZUMAB [Suspect]
     Indication: CASTLEMAN'S DISEASE
     Route: 041
     Dates: start: 20090116, end: 20091204
  2. TOCILIZUMAB [Suspect]
     Route: 041
     Dates: start: 20091225
  3. TAGAMET [Suspect]
     Indication: PROPHYLAXIS
     Dosage: FORM: PERORAL AGENT
     Route: 048
     Dates: end: 20091225
  4. PREDNISOLONE [Concomitant]
     Route: 048
     Dates: end: 20090312
  5. PREDNISOLONE [Concomitant]
     Route: 048
     Dates: start: 20090313, end: 20090326
  6. PREDNISOLONE [Concomitant]
     Route: 048
     Dates: start: 20090327, end: 20090408
  7. PREDNISOLONE [Concomitant]
     Route: 048
     Dates: start: 20090409, end: 20090521
  8. PREDNISOLONE [Concomitant]
     Route: 048
     Dates: start: 20090522, end: 20091225
  9. PREDNISOLONE [Concomitant]
     Route: 048
     Dates: start: 20091226
  10. CANDESARTAN CILEXETIL [Concomitant]
     Route: 048
  11. NORVASC [Concomitant]
     Route: 048
  12. BAKTAR [Concomitant]
     Dosage: FORM:PERORAL AGENT
     Route: 048
  13. FERROMIA [Concomitant]
     Route: 048
     Dates: start: 20091023

REACTIONS (4)
  - IRON DEFICIENCY ANAEMIA [None]
  - METASTASES TO LIVER [None]
  - RECTAL CANCER [None]
  - UPPER RESPIRATORY TRACT INFLAMMATION [None]
